FAERS Safety Report 4839063-8 (Version None)
Quarter: 2005Q4

REPORT INFORMATION
  Report Type: 
  Country: None (occurrence: None)
  Receive Date: 20051128
  Receipt Date: 20051128
  Transmission Date: 20060501
  Serious: No
  Sender: FDA-Public Use
  Company Number: None

PATIENT
  Age: 40 Year
  Sex: Female
  Weight: 99.8 kg

DRUGS (11)
  1. THYMOGLOBULIN [Suspect]
     Indication: APLASTIC ANAEMIA
     Dosage: 350MG IVPB Q 24 HOURS; 250MG IVPB Q24 HR
     Route: 042
     Dates: start: 20050403, end: 20050405
  2. THYMOGLOBULIN [Suspect]
     Indication: APLASTIC ANAEMIA
     Dosage: 350MG IVPB Q 24 HOURS; 250MG IVPB Q24 HR
     Route: 042
     Dates: start: 20050408, end: 20050409
  3. THYMOGLOBULIN [Suspect]
     Indication: APLASTIC ANAEMIA
     Dosage: 114 MG IVPB Q 24 HOURS
     Route: 042
     Dates: start: 20050709, end: 20050711
  4. THYMOGLOBULIN [Suspect]
     Indication: BONE MARROW TRANSPLANT
     Dosage: 114 MG IVPB Q 24 HOURS
     Route: 042
     Dates: start: 20050709, end: 20050711
  5. NEORAL [Concomitant]
  6. NEUPOGEN [Concomitant]
  7. PREVACID [Concomitant]
  8. SOLU-MEDROL [Concomitant]
  9. PROVERA [Concomitant]
  10. ZOSYN [Concomitant]
  11. TOBRAMYCIN [Concomitant]

REACTIONS (1)
  - BRADYCARDIA [None]
